FAERS Safety Report 19508635 (Version 2)
Quarter: 2021Q3

REPORT INFORMATION
  Report Type: Spontaneous
  Country: US (occurrence: US)
  Receive Date: 20210709
  Receipt Date: 20210726
  Transmission Date: 20211014
  Serious: Yes (Hospitalization, Other)
  Sender: FDA-Public Use
  Company Number: US-AMGEN-USASP2021102798

PATIENT
  Age: 72 Year
  Sex: Female
  Weight: 48.9 kg

DRUGS (2)
  1. KYPROLIS [Suspect]
     Active Substance: CARFILZOMIB
     Dosage: 52.9 MILLIGRAM (PATIENT WAS ON CYCLE 2)
     Route: 065
     Dates: end: 20210708
  2. KYPROLIS [Suspect]
     Active Substance: CARFILZOMIB
     Indication: NON-HODGKIN^S LYMPHOMA
     Dosage: 52.9 MICROGRAM (1, 2, 8, AND 9 OF A 21 DAY CYCLE (2 WEEK ONE AND 1 WEEK OFF).
     Route: 042
     Dates: start: 20210601

REACTIONS (2)
  - Hypotension [Unknown]
  - Platelet count decreased [Unknown]

NARRATIVE: CASE EVENT DATE: 20210625
